FAERS Safety Report 4788505-5 (Version None)
Quarter: 2005Q4

REPORT INFORMATION
  Report Type: 
  Country: None (occurrence: None)
  Receive Date: 20051005
  Receipt Date: 20051005
  Transmission Date: 20060501
  Serious: Yes (Hospitalization)
  Sender: FDA-Public Use
  Company Number: None

PATIENT
  Sex: Male
  Weight: 63.6 kg

DRUGS (1)
  1. ACETAMINOPHEN [Suspect]
     Dates: start: 20041022

REACTIONS (7)
  - ANALGESIC DRUG LEVEL INCREASED [None]
  - BLOOD ALCOHOL INCREASED [None]
  - CONFUSIONAL STATE [None]
  - DISORIENTATION [None]
  - DRUG SCREEN POSITIVE [None]
  - OVERDOSE [None]
  - RESTLESSNESS [None]
